FAERS Safety Report 4738899-1 (Version None)
Quarter: 2005Q3

REPORT INFORMATION
  Report Type: 
  Country: None (occurrence: None)
  Receive Date: 20050804
  Receipt Date: 20050729
  Transmission Date: 20060218
  Serious: Yes (Life-Threatening)
  Sender: FDA-Public Use
  Company Number: 200510465BNE

PATIENT
  Age: 64 Year
  Sex: Male

DRUGS (4)
  1. VARDENAFIL [Suspect]
     Indication: ERECTILE DYSFUNCTION
     Dosage: 5 MG, TOTAL DAILY, ORAL
     Route: 048
     Dates: start: 20050720
  2. IRBESARTAN [Concomitant]
  3. ASPIRIN [Concomitant]
  4. ALBUTEROL SULFATE HFA [Concomitant]

REACTIONS (3)
  - CHEST PAIN [None]
  - ELECTROCARDIOGRAM ST SEGMENT DEPRESSION [None]
  - TROPONIN INCREASED [None]
